FAERS Safety Report 4608576-6 (Version None)
Quarter: 2005Q1

REPORT INFORMATION
  Report Type: 
  Country: None (occurrence: None)
  Receive Date: 20050315
  Receipt Date: 20050307
  Transmission Date: 20050727
  Serious: Yes (Hospitalization)
  Sender: FDA-Public Use
  Company Number: US-JNJFOC-20050104207

PATIENT
  Age: 72 Year
  Sex: Male
  Weight: 81 kg

DRUGS (2)
  1. DOXIL [Suspect]
     Indication: MULTIPLE MYELOMA
     Route: 042
  2. VELCADE [Suspect]
     Indication: MULTIPLE MYELOMA
     Dosage: 1.3MG/M2 ON DAYS 1,4,8 AND 11, EVERY 21 DAYS
     Route: 042

REACTIONS (4)
  - CHRONIC OBSTRUCTIVE AIRWAYS DISEASE EXACERBATED [None]
  - DUODENAL ULCER HAEMORRHAGE [None]
  - DYSPNOEA [None]
  - PNEUMONIA [None]
